FAERS Safety Report 23822069 (Version 1)
Quarter: 2024Q2

REPORT INFORMATION
  Report Type: Spontaneous
  Country: US (occurrence: US)
  Receive Date: 20240506
  Receipt Date: 20240506
  Transmission Date: 20240716
  Serious: Yes (Hospitalization, Other)
  Sender: FDA-Public Use
  Company Number: US-INCYTE CORPORATION-2024IN004704

PATIENT

DRUGS (1)
  1. JAKAFI [Suspect]
     Active Substance: RUXOLITINIB
     Indication: Myelofibrosis
     Dosage: 10MG TWICE A DAY, 10MG ONCE A DAY ON DIALYSIS DAYS
     Route: 065
     Dates: start: 20240426

REACTIONS (5)
  - Haemorrhage [Unknown]
  - Renal disorder [Unknown]
  - Splenomegaly [Unknown]
  - Platelet count increased [Unknown]
  - White blood cell count increased [Unknown]
